FAERS Safety Report 12429786 (Version 1)
Quarter: 2016Q2

REPORT INFORMATION
  Report Type: Spontaneous
  Country: VE (occurrence: VE)
  Receive Date: 20160602
  Receipt Date: 20160602
  Transmission Date: 20160815
  Serious: Yes (Hospitalization)
  Sender: FDA-Public Use
  Company Number: PHHY2016VE070352

PATIENT
  Sex: Female

DRUGS (2)
  1. MIFLONIDE [Suspect]
     Active Substance: BUDESONIDE
     Indication: ASTHMA
     Dosage: 800 UG, QD
     Route: 055
     Dates: start: 2008
  2. FORADIL [Suspect]
     Active Substance: FORMOTEROL FUMARATE
     Indication: ASTHMA
     Dosage: 24 UG, QD
     Route: 055
     Dates: start: 2008

REACTIONS (5)
  - Hypoaesthesia [Unknown]
  - Fatigue [Unknown]
  - Asthmatic crisis [Unknown]
  - Rhinitis [Unknown]
  - Hypertension [Unknown]
